FAERS Safety Report 5494810-X (Version None)
Quarter: 2007Q4

REPORT INFORMATION
  Report Type: 
  Country: None (occurrence: None)
  Receive Date: 20071015
  Receipt Date: 20060828
  Transmission Date: 20080405
  Serious: Yes (Other)
  Sender: FDA-Public Use
  Company Number: S06-USA-03417-01

PATIENT
  Age: 22 Year
  Sex: Male

DRUGS (4)
  1. LEXAPRO [Suspect]
     Indication: DEPRESSIVE SYMPTOM
     Dosage: 10 MG QD PO
     Route: 048
  2. LEXAPRO [Suspect]
     Indication: SCHIZOPHRENIA
     Dosage: 10 MG QD PO
     Route: 048
  3. ABILIFY [Suspect]
     Indication: DEPRESSIVE SYMPTOM
     Dosage: 15 MG QD PO
     Route: 048
     Dates: end: 20060819
  4. ABILIFY [Suspect]
     Indication: SCHIZOPHRENIA
     Dosage: 15 MG QD PO
     Route: 048
     Dates: end: 20060819

REACTIONS (2)
  - ALANINE AMINOTRANSFERASE INCREASED [None]
  - ASPARTATE AMINOTRANSFERASE INCREASED [None]
